FAERS Safety Report 4689815-2 (Version None)
Quarter: 2005Q2

REPORT INFORMATION
  Report Type: 
  Country: None (occurrence: None)
  Receive Date: 20050613
  Receipt Date: 20050613
  Transmission Date: 20051028
  Serious: Yes (Other)
  Sender: FDA-Public Use
  Company Number: None

PATIENT
  Sex: Female
  Weight: 74.8435 kg

DRUGS (8)
  1. METFORMIN    500 MG [Suspect]
     Indication: DIABETES MELLITUS
     Dosage: 500 MG   BID   ORAL
     Route: 048
     Dates: start: 20041227, end: 20050527
  2. ATENOLOL [Concomitant]
  3. HYDROCHLOROTHIAZIDE [Concomitant]
  4. KLONOPIN [Concomitant]
  5. ENALAPRIL MALEATE [Concomitant]
  6. CRESTOR [Concomitant]
  7. GEMFIBROZIL [Concomitant]
  8. DETROL LA [Concomitant]

REACTIONS (1)
  - TREMOR [None]
